FAERS Safety Report 21918113 (Version 1)
Quarter: 2023Q1

REPORT INFORMATION
  Report Type: Spontaneous
  Country: US (occurrence: US)
  Receive Date: 20230127
  Receipt Date: 20230127
  Transmission Date: 20230417
  Serious: No
  Sender: FDA-Public Use
  Company Number: US-BRISTOL-MYERS SQUIBB COMPANY-2023-012517

PATIENT
  Age: 71 Year
  Sex: Male
  Weight: 68.04 kg

DRUGS (5)
  1. REVLIMID [Suspect]
     Active Substance: LENALIDOMIDE
     Indication: Follicular lymphoma
     Dosage: DOSE : PREV: 15 MG | NEW: 10 MG;     FREQ : DAILY FOR 1-21 DAYS OF EACH 28 DAY CYCLE.
     Route: 048
     Dates: start: 20221229
  2. REVLIMID [Suspect]
     Active Substance: LENALIDOMIDE
     Route: 048
  3. FLUTICASONE [Concomitant]
     Active Substance: FLUTICASONE
     Indication: Product used for unknown indication
  4. DOXYCYCLIN EXPRESS [Concomitant]
     Indication: Product used for unknown indication
     Dosage: 500 MG VIALS
  5. RITUXAN [Concomitant]
     Active Substance: RITUXIMAB
     Indication: Product used for unknown indication

REACTIONS (2)
  - Upper respiratory tract infection [Unknown]
  - Off label use [Unknown]
